FAERS Safety Report 18441054 (Version 1)
Quarter: 2020Q4

REPORT INFORMATION
  Report Type: Spontaneous
  Country: BE (occurrence: BE)
  Receive Date: 20201029
  Receipt Date: 20201029
  Transmission Date: 20210114
  Serious: Yes (Hospitalization, Other)
  Sender: FDA-Public Use
  Company Number: BE-STRIDES ARCOLAB LIMITED-2020SP012899

PATIENT
  Age: 63 Year
  Sex: Male

DRUGS (2)
  1. CYCLOSPORINE. [Suspect]
     Active Substance: CYCLOSPORINE
     Indication: RENAL TRANSPLANT
     Dosage: UNK
     Route: 065
  2. PREDNISOLONE. [Suspect]
     Active Substance: PREDNISOLONE
     Indication: RENAL TRANSPLANT
     Dosage: UNK
     Route: 065

REACTIONS (10)
  - Pupillary reflex impaired [Recovered/Resolved]
  - Eyelid ptosis [Unknown]
  - Headache [Recovered/Resolved]
  - Optic neuritis [Recovered/Resolved]
  - Periorbital pain [Unknown]
  - Blindness [Recovered/Resolved]
  - Aspergilloma [Recovered/Resolved]
  - Sinusitis [Recovered/Resolved]
  - Eye movement disorder [Recovered/Resolved]
  - Eye pain [Unknown]
